FAERS Safety Report 14253955 (Version 3)
Quarter: 2019Q2

REPORT INFORMATION
  Report Type: Spontaneous
  Country: DE (occurrence: GR)
  Receive Date: 20171205
  Receipt Date: 20190611
  Transmission Date: 20190711
  Serious: Yes (Hospitalization, Other)
  Sender: FDA-Public Use
  Company Number: DE-MYLANLABS-2017M1075685

PATIENT
  Age: 77 Year
  Sex: Female

DRUGS (1)
  1. BUDESONIDE. [Suspect]
     Active Substance: BUDESONIDE
     Indication: CHRONIC OBSTRUCTIVE PULMONARY DISEASE
     Dosage: UNK
     Route: 065

REACTIONS (8)
  - Necrosis [Unknown]
  - Product use in unapproved indication [Unknown]
  - Atrial fibrillation [Unknown]
  - Haemodynamic instability [Unknown]
  - Oesophageal candidiasis [Recovered/Resolved with Sequelae]
  - Sepsis [Unknown]
  - Secretion discharge [Unknown]
  - Oesophageal ulcer [Unknown]
